FAERS Safety Report 4471048-6 (Version None)
Quarter: 2004Q4

REPORT INFORMATION
  Report Type: 
  Country: None (occurrence: None)
  Receive Date: 20041011
  Receipt Date: 20041005
  Transmission Date: 20050328
  Serious: Yes (Hospitalization)
  Sender: FDA-Public Use
  Company Number: FR-GLAXOSMITHKLINE-B0347117A

PATIENT
  Age: 40 Year
  Sex: Female

DRUGS (1)
  1. CLAMOXYL [Suspect]
     Indication: SINUSITIS
     Dosage: 1G PER DAY
     Route: 048
     Dates: start: 20040513, end: 20040513

REACTIONS (3)
  - ANGIONEUROTIC OEDEMA [None]
  - PRURITUS [None]
  - URTICARIA [None]
